FAERS Safety Report 12551245 (Version 3)
Quarter: 2016Q4

REPORT INFORMATION
  Report Type: Spontaneous
  Country: US (occurrence: US)
  Receive Date: 20160713
  Receipt Date: 20161101
  Transmission Date: 20170207
  Serious: Yes (Other)
  Sender: FDA-Public Use
  Company Number: US-TEVA-655173USA

PATIENT
  Age: 40 Year
  Sex: Female

DRUGS (6)
  1. ZECUITY [Suspect]
     Active Substance: SUMATRIPTAN SUCCINATE
     Dates: start: 201605, end: 201605
  2. ZECUITY [Suspect]
     Active Substance: SUMATRIPTAN SUCCINATE
     Indication: HEADACHE
     Dates: start: 201603, end: 201603
  3. ZECUITY [Suspect]
     Active Substance: SUMATRIPTAN SUCCINATE
     Dates: start: 20160424, end: 20160424
  4. PROPANOLOL [Concomitant]
     Active Substance: PROPRANOLOL HYDROCHLORIDE
  5. SUMATRIPTAN. [Concomitant]
     Active Substance: SUMATRIPTAN
     Indication: MIGRAINE
  6. IMITREX [Concomitant]
     Active Substance: SUMATRIPTAN SUCCINATE

REACTIONS (17)
  - Application site warmth [Recovered/Resolved]
  - Application site burn [Recovered/Resolved]
  - Application site scab [Recovered/Resolved]
  - Application site discolouration [Recovered/Resolved]
  - Application site discomfort [Recovered/Resolved]
  - Application site pruritus [Recovered/Resolved]
  - Application site papules [Recovered/Resolved]
  - Application site urticaria [Recovered/Resolved]
  - Application site exfoliation [Recovered/Resolved]
  - Application site pain [Recovered/Resolved]
  - Device battery issue [Unknown]
  - Application site paraesthesia [Recovered/Resolved]
  - Application site erosion [Recovered/Resolved]
  - Application site irritation [Recovered/Resolved]
  - Application site pain [Recovered/Resolved]
  - Application site erythema [Recovered/Resolved]
  - Product leakage [Unknown]

NARRATIVE: CASE EVENT DATE: 2016
